FAERS Safety Report 5723937-X (Version None)
Quarter: 2008Q2

REPORT INFORMATION
  Report Type: 
  Country: None (occurrence: None)
  Receive Date: 20080430
  Receipt Date: 20080418
  Transmission Date: 20081010
  Serious: Yes (Hospitalization)
  Sender: FDA-Public Use
  Company Number: US-CVT-080030

PATIENT

DRUGS (12)
  1. RANEXA [Suspect]
     Indication: ANGINA PECTORIS
     Dosage: UNK UNK, UNKNOWN
     Route: 048
     Dates: end: 20070228
  2. RANEXA [Interacting]
     Dosage: 500 MG, BID
     Route: 048
     Dates: start: 20070228
  3. VYTORIN [Interacting]
     Indication: HYPERCHOLESTEROLAEMIA
     Dosage: 10/80 MG, QD
     Route: 048
     Dates: start: 20070201, end: 20070307
  4. PLAVIX [Concomitant]
     Dosage: 75 MG, QD
     Route: 048
  5. ATENOLOL [Concomitant]
     Dosage: 25 MG, QD
     Route: 048
     Dates: end: 20070307
  6. ALLOPURINOL [Concomitant]
     Dosage: 300 MG, QD
     Route: 048
  7. IMDUR [Concomitant]
     Dosage: 30 MG, QD
     Route: 048
  8. CHLORDIAZEPOXIDE HCL [Concomitant]
     Dosage: 1 TABLET, QD HS
     Route: 048
     Dates: end: 20070307
  9. PROTONIX                           /01263201/ [Concomitant]
     Dosage: 40 MG, QD
     Route: 048
     Dates: end: 20070307
  10. GARLIC [Concomitant]
     Dosage: 1000 MG, QD
     Route: 048
     Dates: end: 20070307
  11. SYNTHROID [Concomitant]
     Dosage: 75 MCG, QD
     Route: 048
  12. ASPIRIN [Concomitant]
     Dosage: 81 MG, QD
     Route: 048

REACTIONS (4)
  - ASTHENIA [None]
  - DRUG INTERACTION [None]
  - FALL [None]
  - RHABDOMYOLYSIS [None]
